FAERS Safety Report 15112170 (Version 1)
Quarter: 2018Q3

REPORT INFORMATION
  Report Type: Spontaneous
  Country: US (occurrence: US)
  Receive Date: 20180705
  Receipt Date: 20180705
  Transmission Date: 20181010
  Serious: Yes (Other)
  Sender: FDA-Public Use
  Company Number: US-TEVA-2018-US-918913

PATIENT
  Age: 78 Year
  Sex: Male

DRUGS (10)
  1. PYRIDOXINE [Concomitant]
     Active Substance: PYRIDOXINE
     Indication: GRANULOMATOUS LYMPHADENITIS
     Route: 065
  2. ETHAMBUTOL [Suspect]
     Active Substance: ETHAMBUTOL HYDROCHLORIDE
     Indication: GRANULOMATOUS LYMPHADENITIS
  3. ETHAMBUTOL [Suspect]
     Active Substance: ETHAMBUTOL HYDROCHLORIDE
     Indication: BALANOPOSTHITIS
     Route: 065
  4. RIFAMPICIN [Suspect]
     Active Substance: RIFAMPIN
     Indication: BALANOPOSTHITIS
     Route: 065
  5. INTERFERON [Concomitant]
     Active Substance: INTERFERON
     Indication: TRANSITIONAL CELL CARCINOMA
     Route: 043
  6. ISONIAZID. [Suspect]
     Active Substance: ISONIAZID
     Indication: BALANOPOSTHITIS
     Dosage: RECEIVED FOR ONE MONTH AS A MONO?THERAPY AND THEN FIVE MONTHS WITH ETHAMBUTOL, RIFAMPICIN AND PYR...
     Route: 065
  7. BCG [Suspect]
     Active Substance: BCG VACCINE
     Indication: TRANSITIONAL CELL CARCINOMA
     Route: 043
  8. ISONIAZID. [Suspect]
     Active Substance: ISONIAZID
     Indication: GRANULOMATOUS LYMPHADENITIS
  9. RIFAMPICIN [Suspect]
     Active Substance: RIFAMPIN
     Indication: GRANULOMATOUS LYMPHADENITIS
  10. PYRIDOXINE [Concomitant]
     Active Substance: PYRIDOXINE
     Indication: BALANOPOSTHITIS

REACTIONS (4)
  - Granuloma [Recovered/Resolved]
  - Balanoposthitis [Recovered/Resolved]
  - Granulomatous lymphadenitis [Recovered/Resolved]
  - Neuropathy peripheral [Unknown]
